FAERS Safety Report 7709289-4 (Version None)
Quarter: 2011Q3

REPORT INFORMATION
  Report Type: 
  Country: None (occurrence: None)
  Receive Date: 20110825
  Receipt Date: 20110824
  Transmission Date: 20111222
  Serious: Yes (Other)
  Sender: FDA-Public Use
  Company Number: GB-ALLERGAN-0810894US

PATIENT
  Age: 28 Month

DRUGS (1)
  1. BRIMONIDINE TARTRATE [Suspect]
     Indication: GLAUCOMA
     Dosage: UNK, UNKNOWN
     Route: 047

REACTIONS (1)
  - DEPRESSED LEVEL OF CONSCIOUSNESS [None]
